FAERS Safety Report 8044384-4 (Version None)
Quarter: 2012Q1

REPORT INFORMATION
  Report Type: 
  Country: None (occurrence: None)
  Receive Date: 20120113
  Receipt Date: 20120103
  Transmission Date: 20120608
  Serious: Yes (Death)
  Sender: FDA-Public Use
  Company Number: US-SHIONOGI, INC-2012000004

PATIENT
  Age: 17 Year
  Sex: Female

DRUGS (18)
  1. METHYLPHENIDATE [Suspect]
     Dosage: UNK
  2. ROSUVASTATIN [Suspect]
     Dosage: UNK
  3. FLUOXETINE HYDROCHLORIDE [Suspect]
     Dosage: UNK
  4. GUANFACINE [Suspect]
     Dosage: UNK
  5. LAXATIVE [Suspect]
     Dosage: UNK
  6. HYOSCYAMINE SULFATE [Suspect]
     Dosage: UNK
  7. IBUPROFEN [Suspect]
     Dosage: UNK
  8. PHENOL [Suspect]
     Dosage: UNK
  9. MONTELUKAST [Suspect]
     Dosage: UNK
  10. HYDROCODONE BITARTRATE AND ACETAMINOPHEN [Suspect]
     Dosage: UNK
  11. MAGNESIUM [Suspect]
     Dosage: UNK
  12. DEXTROMETHORPHAN HYDROBROMIDE [Suspect]
     Dosage: UNK
  13. NAPROXEN [Suspect]
     Dosage: UNK
  14. ETHANOL [Suspect]
     Dosage: UNK
  15. CITALOPRAM HYDROBROMIDE [Suspect]
     Dosage: UNK
  16. LOPERAMIDE HCL [Suspect]
     Dosage: UNK
  17. HALOPERIDOL [Suspect]
     Dosage: UNK
  18. PSEUDOEPHEDRINE HCL [Suspect]
     Dosage: UNK

REACTIONS (1)
  - COMPLETED SUICIDE [None]
